FAERS Safety Report 6671326-6 (Version None)
Quarter: 2010Q2

REPORT INFORMATION
  Report Type: 
  Country: None (occurrence: None)
  Receive Date: 20100407
  Receipt Date: 20100331
  Transmission Date: 20101027
  Serious: Yes (Other)
  Sender: FDA-Public Use
  Company Number: GB-JNJCH-2010007964

PATIENT
  Sex: Female

DRUGS (4)
  1. NICORETTE [Suspect]
     Indication: DRUG USE FOR UNKNOWN INDICATION
     Dosage: TEXT:UNKNOWN
     Route: 062
  2. LORAZEPAM [Suspect]
     Indication: ANXIETY
     Dosage: TEXT:UNKNOWN
     Route: 065
  3. DIAZEPAM [Concomitant]
     Indication: ANXIETY
     Dosage: TEXT:UNKNOWN
     Route: 065
  4. PREGABALIN [Concomitant]
     Indication: ANXIETY
     Dosage: TEXT:UNKNOWN
     Route: 065

REACTIONS (4)
  - ACTIVITIES OF DAILY LIVING IMPAIRED [None]
  - DISTURBANCE IN ATTENTION [None]
  - FEELING ABNORMAL [None]
  - WRONG TECHNIQUE IN DRUG USAGE PROCESS [None]
